FAERS Safety Report 5319746-6 (Version None)
Quarter: 2007Q2

REPORT INFORMATION
  Report Type: 
  Country: None (occurrence: None)
  Receive Date: 20070503
  Receipt Date: 20070425
  Transmission Date: 20071010
  Serious: Yes (Hospitalization)
  Sender: FDA-Public Use
  Company Number: TUK2007A00042

PATIENT
  Age: 70 Year
  Sex: Female

DRUGS (1)
  1. ACTOS [Suspect]
     Dosage: 15 MG
     Dates: start: 20070301

REACTIONS (2)
  - FALL [None]
  - HUMERUS FRACTURE [None]
